FAERS Safety Report 10953358 (Version 1)
Quarter: 2015Q1

REPORT INFORMATION
  Report Type: Spontaneous
  Country: US (occurrence: None)
  Receive Date: 20150226
  Receipt Date: 20150226
  Transmission Date: 20150721
  Serious: No
  Sender: FDA-Public Use
  Company Number: TAP2004Q00160

PATIENT
  Age: 58 Year
  Sex: Female
  Weight: 83.92 kg

DRUGS (3)
  1. IMITREX [Concomitant]
     Active Substance: SUMATRIPTAN\SUMATRIPTAN SUCCINATE
  2. LEXAPRO [Concomitant]
     Active Substance: ESCITALOPRAM OXALATE
  3. PREVPAC [Suspect]
     Active Substance: AMOXICILLIN\CLARITHROMYCIN\LANSOPRAZOLE
     Indication: HELICOBACTER INFECTION
     Dosage: 0.5 CARD, 2 IN 1 D
     Route: 048
     Dates: start: 200312, end: 200312

REACTIONS (5)
  - Migraine [None]
  - Decreased appetite [None]
  - Nausea [None]
  - Abdominal pain upper [None]
  - Chest pain [None]

NARRATIVE: CASE EVENT DATE: 200312
